FAERS Safety Report 9322743 (Version 3)
Quarter: 2013Q4

REPORT INFORMATION
  Report Type: Spontaneous
  Country: US (occurrence: US)
  Receive Date: 20130601
  Receipt Date: 20131017
  Transmission Date: 20140711
  Serious: Yes (Disabling)
  Sender: FDA-Public Use
  Company Number: US-ASTRAZENECA-2013SE38664

PATIENT
  Age: 13005 Day
  Sex: Female
  Weight: 81.6 kg

DRUGS (15)
  1. NEXIUM [Suspect]
     Indication: GASTROOESOPHAGEAL REFLUX DISEASE
     Route: 048
     Dates: start: 2003
  2. NEXIUM [Suspect]
     Indication: GASTROOESOPHAGEAL REFLUX DISEASE
     Dosage: 1 TIME A DAY
     Route: 048
     Dates: start: 2008, end: 2013
  3. NEXIUM [Suspect]
     Indication: GASTROOESOPHAGEAL REFLUX DISEASE
     Route: 048
     Dates: start: 20080117
  4. PREVACID [Concomitant]
     Dates: start: 2003
  5. GAVISCON [Concomitant]
     Indication: ABDOMINAL DISCOMFORT
     Dates: start: 2002
  6. TUMS [Concomitant]
     Indication: ABDOMINAL DISCOMFORT
     Dosage: ONE A MONTH, AS NEEDED
     Dates: start: 2002
  7. ROLAIDS [Concomitant]
     Indication: ABDOMINAL DISCOMFORT
     Dosage: ONE A MONTH, AS NEEDED
     Dates: start: 2002
  8. XYZAL [Concomitant]
     Indication: MULTIPLE ALLERGIES
  9. GABAPENTIN [Concomitant]
     Indication: NEURALGIA
  10. NAPROSYN [Concomitant]
  11. LORTAB [Concomitant]
     Dosage: 5/500 1 BY MOUTH EVERY SIX HOURS IF NEEDED FOR PAIN
  12. PAROXETINE [Concomitant]
     Dates: start: 20071017
  13. LEVOTHYROXINE [Concomitant]
     Dates: start: 20071017
  14. ACIPHEX [Concomitant]
     Dates: start: 20070223
  15. ZYRTEC [Concomitant]
     Dates: start: 20070126

REACTIONS (14)
  - Autoimmune thyroiditis [Unknown]
  - Bipolar disorder [Unknown]
  - Osteopenia [Unknown]
  - Osteoarthritis [Unknown]
  - Neuropathy peripheral [Unknown]
  - Osteoporosis [Unknown]
  - Bone disorder [Unknown]
  - Foot fracture [Unknown]
  - Vitamin D deficiency [Unknown]
  - Gastritis erosive [Unknown]
  - Gastric polyps [Unknown]
  - Hypothyroidism [Unknown]
  - Muscle spasms [Unknown]
  - Depression [Unknown]
